FAERS Safety Report 7828225-3 (Version None)
Quarter: 2011Q4

REPORT INFORMATION
  Report Type: 
  Country: None (occurrence: None)
  Receive Date: 20111020
  Receipt Date: 20111011
  Transmission Date: 20120403
  Serious: Yes (Hospitalization, Other)
  Sender: FDA-Public Use
  Company Number: US-BAYER-2011-099919

PATIENT
  Age: 25 Year
  Sex: Female

DRUGS (8)
  1. OLANZAPINE [Concomitant]
  2. TRAMADOL HCL [Concomitant]
  3. TRAZODONE HYDROCHLORIDE [Concomitant]
  4. PARACETAMOL + DIPHENHYDRAMINE [Suspect]
     Indication: INTENTIONAL OVERDOSE
     Dosage: 50 DF, ONCE
     Route: 048
     Dates: start: 20080101
  5. PARACETAMOL + DIPHENHYDRAMINE [Suspect]
     Dosage: 35 EPISODES OF OVERDOSE OF 50 TO 200 TABLETS WITHIN 39 MONTHS
     Route: 048
  6. LORAZEPAM [Concomitant]
  7. LEVETIRACETAM [Concomitant]
  8. ETHANOL [Concomitant]

REACTIONS (6)
  - NAUSEA [None]
  - SOMNOLENCE [None]
  - VOMITING [None]
  - HEPATOTOXICITY [None]
  - TACHYCARDIA [None]
  - INTENTIONAL OVERDOSE [None]
